FAERS Safety Report 14457590 (Version 1)
Quarter: 2018Q1

REPORT INFORMATION
  Report Type: Spontaneous
  Country: US (occurrence: US)
  Receive Date: 20180130
  Receipt Date: 20180130
  Transmission Date: 20180509
  Serious: No
  Sender: FDA-Public Use
  Company Number: US-PFIZER INC-2018038931

PATIENT
  Age: 66 Year
  Sex: Female
  Weight: 71.21 kg

DRUGS (2)
  1. HYDROCHLOROTHIAZIDE. [Concomitant]
     Active Substance: HYDROCHLOROTHIAZIDE
     Indication: BLOOD PRESSURE ABNORMAL
     Dosage: 12.5MG ONE CAPSULE BY MOUTH DAILY
     Route: 048
  2. DESVENLAFAXINE SUCCINATE MONOHYDRATE [Suspect]
     Active Substance: DESVENLAFAXINE SUCCINATE
     Indication: PANIC ATTACK
     Dosage: 50MG (ONE TABLET), DAILY
     Route: 048

REACTIONS (3)
  - Drug ineffective for unapproved indication [Unknown]
  - Headache [Recovered/Resolved]
  - Nightmare [Recovered/Resolved]
